FAERS Safety Report 4708281-1 (Version None)
Quarter: 2005Q3

REPORT INFORMATION
  Report Type: 
  Country: None (occurrence: None)
  Receive Date: 20050707
  Receipt Date: 20050309
  Transmission Date: 20060218
  Serious: Yes (Hospitalization)
  Sender: FDA-Public Use
  Company Number: US-MERCK-0503USA02096

PATIENT
  Age: 62 Year
  Sex: Female

DRUGS (18)
  1. VIOXX [Suspect]
     Route: 048
     Dates: start: 20001201, end: 20010701
  2. HUMULIN [Concomitant]
     Route: 065
  3. LASIX [Concomitant]
     Route: 065
  4. ALDACTONE [Concomitant]
     Route: 065
  5. DIOVAN [Concomitant]
     Route: 065
  6. PRILOSEC [Concomitant]
     Route: 065
  7. ZYLOPRIM [Concomitant]
     Route: 065
  8. TRENTAL [Concomitant]
     Route: 065
  9. ASPIRIN [Concomitant]
     Route: 065
  10. NORPRAMIN [Concomitant]
     Route: 065
  11. AVANDIA [Concomitant]
     Route: 065
  12. LIPITOR [Concomitant]
     Route: 065
  13. SINEQUAN [Concomitant]
     Route: 065
  14. NEURONTIN [Concomitant]
     Route: 065
  15. PREMARIN [Concomitant]
     Route: 065
  16. PROGESTERONE [Concomitant]
     Route: 065
  17. SEREVENT [Concomitant]
     Route: 065
  18. ALBUTEROL [Concomitant]
     Route: 065

REACTIONS (18)
  - ANAEMIA [None]
  - ARTHROPATHY [None]
  - BRADYCARDIA [None]
  - CARDIAC FAILURE CONGESTIVE [None]
  - CARDIOGENIC SHOCK [None]
  - DIABETIC FOOT INFECTION [None]
  - DIARRHOEA [None]
  - DRUG INTOLERANCE [None]
  - FALL [None]
  - GASTRITIS [None]
  - GASTROINTESTINAL HAEMORRHAGE [None]
  - HYPERKALAEMIA [None]
  - MYOCARDIAL INFARCTION [None]
  - OESOPHAGITIS [None]
  - PAIN [None]
  - RENAL FAILURE ACUTE [None]
  - SHOCK HAEMORRHAGIC [None]
  - SLEEP APNOEA SYNDROME [None]
